FAERS Safety Report 4359804-6 (Version None)
Quarter: 2004Q2

REPORT INFORMATION
  Report Type: 
  Country: None (occurrence: None)
  Receive Date: 20040518
  Receipt Date: 20040302
  Transmission Date: 20050107
  Serious: Yes (Life-Threatening, Hospitalization)
  Sender: FDA-Public Use
  Company Number: GB-ROCHE-360328

PATIENT
  Age: 41 Year
  Sex: Male

DRUGS (6)
  1. FUZEON [Suspect]
     Indication: HIV INFECTION
     Route: 058
     Dates: start: 20040209, end: 20040227
  2. LOPINAVIR [Concomitant]
  3. DAPSONE [Concomitant]
     Dates: end: 20040229
  4. KALETRA [Concomitant]
     Dates: start: 20040209, end: 20040227
  5. 3TC [Concomitant]
     Dates: start: 20040209, end: 20040227
  6. LANSOPRAZOLE [Concomitant]

REACTIONS (8)
  - ABDOMINAL DISCOMFORT [None]
  - ABDOMINAL DISTENSION [None]
  - BLISTER [None]
  - HYPERSENSITIVITY [None]
  - ORAL CANDIDIASIS [None]
  - PYREXIA [None]
  - RENAL FAILURE [None]
  - TOXIC EPIDERMAL NECROLYSIS [None]
